FAERS Safety Report 25795708 (Version 1)
Quarter: 2025Q3

REPORT INFORMATION
  Report Type: Spontaneous
  Country: AU (occurrence: AU)
  Receive Date: 20250912
  Receipt Date: 20250912
  Transmission Date: 20251021
  Serious: Yes (Hospitalization, Other)
  Sender: ENDO
  Company Number: AU-ENDO USA, INC.-2025-001938

PATIENT
  Age: 18 Year
  Sex: Male

DRUGS (3)
  1. AVEED [Suspect]
     Active Substance: TESTOSTERONE UNDECANOATE
     Indication: Transgender hormonal therapy
     Route: 030
     Dates: start: 202402
  2. AVEED [Suspect]
     Active Substance: TESTOSTERONE UNDECANOATE
     Route: 030
     Dates: start: 202403
  3. NORETHINDRONE ACETATE [Concomitant]
     Active Substance: NORETHINDRONE ACETATE
     Indication: Product used for unknown indication
     Route: 065

REACTIONS (13)
  - Papilloedema [Recovering/Resolving]
  - VIth nerve paralysis [Recovering/Resolving]
  - Cerebral venous sinus thrombosis [Recovering/Resolving]
  - Deafness unilateral [Recovering/Resolving]
  - Headache [Unknown]
  - Visual acuity reduced [Recovering/Resolving]
  - Photophobia [Recovering/Resolving]
  - Neck pain [Recovering/Resolving]
  - Diplopia [Recovering/Resolving]
  - Ataxia [Recovered/Resolved]
  - Arthralgia [Recovering/Resolving]
  - Inappropriate schedule of product administration [Unknown]
  - Off label use [Unknown]

NARRATIVE: CASE EVENT DATE: 20240201
